FAERS Safety Report 9024582 (Version 2)
Quarter: 2014Q2

REPORT INFORMATION
  Report Type: Report from Study
  Country: US (occurrence: US)
  Receive Date: 20130121
  Receipt Date: 20140521
  Transmission Date: 20141212
  Serious: Yes (Hospitalization)
  Sender: FDA-Public Use
  Company Number: US-BRISTOL-MYERS SQUIBB COMPANY-17277880

PATIENT
  Age: 71 Year
  Sex: Male
  Weight: 105.8 kg

DRUGS (1)
  1. IPILIMUMAB [Suspect]
     Indication: MALIGNANT MELANOMA
     Dosage: LAST DOSE-21DEC12;TOTAL DOSE-320 MG;
     Route: 042
     Dates: start: 20121018

REACTIONS (3)
  - Hyponatraemia [Recovered/Resolved]
  - Hypophysitis [Recovered/Resolved]
  - Hypothyroidism [Recovered/Resolved]
